FAERS Safety Report 5918083-6 (Version None)
Quarter: 2008Q4

REPORT INFORMATION
  Report Type: 
  Country: None (occurrence: None)
  Receive Date: 20081009
  Receipt Date: 20080910
  Transmission Date: 20090506
  Serious: Yes (Death, Hospitalization)
  Sender: FDA-Public Use
  Company Number: 2008S1015585

PATIENT
  Age: 84 Year
  Sex: Female

DRUGS (3)
  1. ALENDRONATE SODIUM [Suspect]
     Indication: OSTEOPOROSIS
     Dosage: 70 MG; WEEKLY; ORAL
     Route: 048
  2. FOSAMAX [Suspect]
     Indication: OSTEOPOROSIS
     Dosage: 70 MG; ORAL
     Route: 048
  3. FOSAMAX [Concomitant]

REACTIONS (4)
  - CHEST PAIN [None]
  - DEHYDRATION [None]
  - FALL [None]
  - OESOPHAGITIS [None]
